FAERS Safety Report 25373373 (Version 1)
Quarter: 2025Q2

REPORT INFORMATION
  Report Type: Other
  Country: IN (occurrence: IN)
  Receive Date: 20250529
  Receipt Date: 20250529
  Transmission Date: 20250717
  Serious: Yes (Hospitalization)
  Sender: Apozeal Pharmaceuticals
  Company Number: IN-Apozeal Pharmaceuticals-2177689

PATIENT
  Age: 49 Year
  Sex: Male

DRUGS (2)
  1. RISPERIDONE [Suspect]
     Active Substance: RISPERIDONE
     Indication: Schizophrenia
  2. TRAMADOL [Interacting]
     Active Substance: TRAMADOL

REACTIONS (2)
  - Dyskinesia [Recovered/Resolved]
  - Drug interaction [Unknown]
